FAERS Safety Report 11007960 (Version 1)
Quarter: 2015Q2

REPORT INFORMATION
  Report Type: Spontaneous
  Country: FR (occurrence: FR)
  Receive Date: 20150410
  Receipt Date: 20150410
  Transmission Date: 20150821
  Serious: Yes (Hospitalization)
  Sender: FDA-Public Use
  Company Number: FR-ROCHE-1561759

PATIENT
  Age: 45 Year
  Sex: Male

DRUGS (18)
  1. XYZALL [Concomitant]
     Active Substance: LEVOCETIRIZINE DIHYDROCHLORIDE
  2. LYRICA [Concomitant]
     Active Substance: PREGABALIN
  3. CALCIDOSE [Concomitant]
     Active Substance: CALCIUM CARBONATE
  4. TOCO [Concomitant]
     Active Substance: UNSPECIFIED INGREDIENT
  5. TRANQUITAL [Concomitant]
  6. JANUVIA [Concomitant]
     Active Substance: SITAGLIPTIN PHOSPHATE
  7. ELISOR [Concomitant]
     Active Substance: PRAVASTATIN SODIUM
     Route: 065
  8. UVEDOSE [Concomitant]
     Active Substance: CHOLECALCIFEROL
  9. CREON [Concomitant]
     Active Substance: PANCRELIPASE AMYLASE\PANCRELIPASE LIPASE\PANCRELIPASE PROTEASE
  10. HUMALOG [Concomitant]
     Active Substance: INSULIN LISPRO
  11. MAGNE B6 [Concomitant]
     Active Substance: MAGNESIUM\PYRIDOXINE
  12. ROVALCYTE [Suspect]
     Active Substance: VALGANCICLOVIR HYDROCHLORIDE
     Route: 048
     Dates: start: 201011, end: 201102
  13. LANTUS [Concomitant]
     Active Substance: INSULIN GLARGINE
  14. ROVALCYTE [Suspect]
     Active Substance: VALGANCICLOVIR HYDROCHLORIDE
     Indication: PRODUCT USED FOR UNKNOWN INDICATION
     Route: 048
     Dates: start: 20141212, end: 20141215
  15. ADVAGRAF [Concomitant]
     Active Substance: TACROLIMUS
  16. ACLASTA [Concomitant]
     Active Substance: ZOLEDRONIC ACID
  17. MOTILIUM [Concomitant]
     Active Substance: DOMPERIDONE
  18. CELLCEPT [Concomitant]
     Active Substance: MYCOPHENOLATE MOFETIL\MYCOPHENOLATE MOFETIL HYDROCHLORIDE

REACTIONS (4)
  - Rash [Recovered/Resolved]
  - Nausea [Recovered/Resolved]
  - Vomiting [Recovered/Resolved]
  - Diarrhoea [Recovered/Resolved]

NARRATIVE: CASE EVENT DATE: 20141214
